FAERS Safety Report 4948221-3 (Version None)
Quarter: 2006Q1

REPORT INFORMATION
  Report Type: 
  Country: None (occurrence: None)
  Receive Date: 20060320
  Receipt Date: 20060310
  Transmission Date: 20060701
  Serious: Yes (Other)
  Sender: FDA-Public Use
  Company Number: US-KINGPHARMUSA00001-K200600329

PATIENT
  Age: 75 Year
  Sex: Male

DRUGS (2)
  1. ALTACE [Suspect]
     Indication: BLOOD PRESSURE
     Dosage: 2.5 MG, QD
     Route: 048
     Dates: start: 20060101
  2. COUMADIN [Concomitant]
     Dosage: 4.5 MG, UNK
     Route: 048
     Dates: start: 20040101

REACTIONS (5)
  - COUGH [None]
  - EXTRASYSTOLES [None]
  - NASOPHARYNGITIS [None]
  - TRANSIENT ISCHAEMIC ATTACK [None]
  - VISUAL DISTURBANCE [None]
